FAERS Safety Report 6412089-9 (Version None)
Quarter: 2009Q4

REPORT INFORMATION
  Report Type: 
  Country: None (occurrence: None)
  Receive Date: 20091023
  Receipt Date: 20091014
  Transmission Date: 20100525
  Serious: Yes (Hospitalization, Other)
  Sender: FDA-Public Use
  Company Number: CA-ABBOTT-09P-028-0603418-00

PATIENT
  Sex: Male

DRUGS (6)
  1. HUMIRA [Suspect]
     Indication: PSORIATIC ARTHROPATHY
     Route: 058
     Dates: start: 20060603
  2. PREDNISONE TAB [Concomitant]
     Indication: DRUG USE FOR UNKNOWN INDICATION
  3. PARIET [Concomitant]
     Indication: DRUG USE FOR UNKNOWN INDICATION
  4. MULTI-VITAMIN [Concomitant]
     Indication: DRUG USE FOR UNKNOWN INDICATION
  5. XATRAL [Concomitant]
     Indication: DRUG USE FOR UNKNOWN INDICATION
  6. LUCENTIS [Concomitant]
     Indication: DRUG USE FOR UNKNOWN INDICATION
     Dosage: IN RIGHT EYE ONCE A MONTH

REACTIONS (3)
  - CATARACT [None]
  - KNEE ARTHROPLASTY [None]
  - MACULAR DEGENERATION [None]
